FAERS Safety Report 5906623-2 (Version None)
Quarter: 2008Q4

REPORT INFORMATION
  Report Type: 
  Country: None (occurrence: None)
  Receive Date: 20081002
  Receipt Date: 20080917
  Transmission Date: 20090506
  Serious: Yes (Death)
  Sender: FDA-Public Use
  Company Number: TR-GENENTECH-268672

PATIENT

DRUGS (1)
  1. MABTHERA [Suspect]
     Indication: NON-HODGKIN'S LYMPHOMA
     Dosage: 375 MG/M2, QD
     Route: 042
     Dates: start: 20080409

REACTIONS (1)
  - DEPRESSED LEVEL OF CONSCIOUSNESS [None]
